FAERS Safety Report 8556772-8 (Version None)
Quarter: 2012Q3

REPORT INFORMATION
  Report Type: 
  Country: None (occurrence: None)
  Receive Date: 20120801
  Receipt Date: 20120726
  Transmission Date: 20120928
  Serious: Yes (Hospitalization)
  Sender: FDA-Public Use
  Company Number: US-AMGEN-USASP2012046853

PATIENT
  Sex: Female

DRUGS (3)
  1. AMBIEN [Concomitant]
     Dosage: UNK
  2. EFFEXOR [Concomitant]
  3. ENBREL [Suspect]
     Indication: PRODUCT USED FOR UNKNOWN INDICATION
     Dosage: UNK
     Dates: start: 20000101

REACTIONS (2)
  - SYNCOPE [None]
  - CONVULSION [None]
